FAERS Safety Report 9557605 (Version 2)
Quarter: 2013Q4

REPORT INFORMATION
  Report Type: Spontaneous
  Country: US (occurrence: US)
  Receive Date: 20130926
  Receipt Date: 20131018
  Transmission Date: 20140711
  Serious: Yes (Hospitalization)
  Sender: FDA-Public Use
  Company Number: US-GLAXOSMITHKLINE-A1042960A

PATIENT
  Age: 63 Year
  Sex: Female

DRUGS (1)
  1. PROMACTA [Suspect]
     Indication: BREAST CANCER
     Dosage: 50MG PER DAY
     Route: 048

REACTIONS (1)
  - Hospitalisation [Unknown]
